FAERS Safety Report 23634703 (Version 2)
Quarter: 2024Q2

REPORT INFORMATION
  Report Type: Spontaneous
  Country: US (occurrence: US)
  Receive Date: 20240315
  Receipt Date: 20240613
  Transmission Date: 20240716
  Serious: No
  Sender: FDA-Public Use
  Company Number: US-BRISTOL-MYERS SQUIBB COMPANY-2024-041738

PATIENT
  Age: 80 Year
  Sex: Male
  Weight: 118.84 kg

DRUGS (2)
  1. REVLIMID [Suspect]
     Active Substance: LENALIDOMIDE
     Indication: Plasma cell myeloma
     Route: 048
     Dates: start: 20240201
  2. REVLIMID [Suspect]
     Active Substance: LENALIDOMIDE
     Route: 048

REACTIONS (6)
  - Mood swings [Unknown]
  - Incontinence [Unknown]
  - Amnesia [Unknown]
  - Diarrhoea [Unknown]
  - Faeces soft [Unknown]
  - Off label use [Unknown]
